FAERS Safety Report 4743446-4 (Version None)
Quarter: 2005Q3

REPORT INFORMATION
  Report Type: 
  Country: None (occurrence: None)
  Receive Date: 20050809
  Receipt Date: 20050801
  Transmission Date: 20060218
  Serious: Yes (Hospitalization)
  Sender: FDA-Public Use
  Company Number: 2005-07-0475

PATIENT
  Age: 50 Year
  Sex: Female

DRUGS (5)
  1. CLARITIN [Suspect]
     Indication: PRURITUS
     Dosage: 10 MG ORAL
     Route: 048
     Dates: start: 20050608, end: 20050628
  2. TIENAM           (IMIPENEM/CILASTATIN) INJECTABLE [Suspect]
     Indication: PNEUMONIA
  3. TIENAM           (IMIPENEM/CILASTATIN) INJECTABLE [Suspect]
     Indication: SEPSIS
  4. FESIN INJECTABLE [Concomitant]
  5. EPOETIN BETA INJECTABLE [Concomitant]

REACTIONS (3)
  - EOSINOPHIL COUNT INCREASED [None]
  - INFECTION [None]
  - PRURITUS [None]
